FAERS Safety Report 9003111 (Version 1)
Quarter: 2013Q1

REPORT INFORMATION
  Report Type: Spontaneous
  Country: FR (occurrence: FR)
  Receive Date: 20130108
  Receipt Date: 20130108
  Transmission Date: 20140127
  Serious: Yes (Life-Threatening, Other)
  Sender: FDA-Public Use
  Company Number: FR-ROCHE-1175921

PATIENT
  Age: 79 Year
  Sex: Male

DRUGS (6)
  1. ACTILYSE [Suspect]
     Indication: PULMONARY EMBOLISM
     Route: 042
     Dates: start: 20100201, end: 20100201
  2. ACTILYSE [Suspect]
     Route: 042
     Dates: start: 20100201, end: 20100201
  3. HEPARIN [Suspect]
     Indication: PULMONARY EMBOLISM
     Route: 042
     Dates: start: 20100201, end: 20100202
  4. ISOPTINE [Concomitant]
  5. LIPANTHYL [Concomitant]
  6. DEROXAT [Concomitant]

REACTIONS (5)
  - Renal haematoma [Unknown]
  - Retroperitoneal haematoma [Unknown]
  - Kidney rupture [Unknown]
  - Abdominal pain [Unknown]
  - Blood count abnormal [Unknown]
